FAERS Safety Report 8793919 (Version 1)
Quarter: 2012Q4

REPORT INFORMATION
  Report Type: 
  Country: FR (occurrence: FR)
  Receive Date: 20120917
  Receipt Date: 20120917
  Transmission Date: 20130627
  Serious: Yes (Hospitalization)
  Sender: FDA-Public Use
  Company Number: FR-VERTEX PHARMACEUTICAL INC.-000000000000000328

PATIENT
  Age: 51 None
  Sex: Male
  Weight: 65 kg

DRUGS (18)
  1. INCIVO [Suspect]
     Indication: HEPATITIS C
     Dosage: 750 mg, tid
     Route: 048
     Dates: start: 20111202
  2. INCIVO [Suspect]
     Dosage: 750 mg, tid
     Route: 048
     Dates: end: 20120218
  3. COPEGUS [Suspect]
     Indication: HEPATITIS C
     Dosage: 600 mg, bid
     Route: 048
     Dates: start: 20111202
  4. COPEGUS [Suspect]
     Dosage: 600 mg, qd
     Dates: end: 20120302
  5. PEGASYS [Suspect]
     Indication: HEPATITIS C
     Dosage: 180 ?g, weekly
     Route: 058
     Dates: start: 20111202, end: 20120224
  6. VOLTARENE [Suspect]
     Indication: PAIN
     Dosage: UNK
     Dates: start: 201111
  7. VOLTARENE [Suspect]
     Dosage: UNK
     Dates: start: 20111202, end: 20120115
  8. LEVOTHYROX [Concomitant]
     Indication: BLOOD THYROID STIMULATING HORMONE INCREASED
     Dosage: 150 ?g, qd
     Route: 048
     Dates: start: 20120113
  9. LEVOTHYROX [Concomitant]
     Indication: HYPOTHYROIDISM
     Dosage: 125 ?g, qd
     Route: 048
     Dates: start: 2004
  10. TIORFAN [Concomitant]
     Indication: DIARRHOEA
     Dates: start: 20111212, end: 20120115
  11. NEORECORMON [Concomitant]
     Indication: ANAEMIA
     Dosage: one every 2 weeks
     Route: 058
  12. NEORECORMON [Concomitant]
     Dosage: weekly
     Route: 058
     Dates: start: 20111227
  13. SMECTA [Concomitant]
     Indication: DIARRHOEA
     Route: 048
     Dates: start: 201112
  14. DOLIPRANE [Concomitant]
     Dosage: 3 DF, qd
  15. OTIPAX [Concomitant]
     Dates: start: 20111202, end: 20120120
  16. HOMEOPATHIC DRUG [Concomitant]
     Dates: start: 201112, end: 201201
  17. DAFLON [Concomitant]
     Dates: start: 20120101
  18. DELURSAN [Concomitant]

REACTIONS (7)
  - Toxic skin eruption [Recovered/Resolved]
  - Pruritus [Recovered/Resolved]
  - Drug reaction with eosinophilia and systemic symptoms [Recovered/Resolved]
  - Hyperuricaemia [Unknown]
  - Pancytopenia [Unknown]
  - Blood thyroid stimulating hormone increased [Unknown]
  - Inappropriate schedule of drug administration [Unknown]
